FAERS Safety Report 9552761 (Version 1)
Quarter: 2013Q3

REPORT INFORMATION
  Report Type: Spontaneous
  Country: JP (occurrence: JP)
  Receive Date: 20130925
  Receipt Date: 20130925
  Transmission Date: 20140515
  Serious: Yes (Hospitalization)
  Sender: FDA-Public Use
  Company Number: JP-ELI_LILLY_AND_COMPANY-JP201309006560

PATIENT
  Age: 82 Year
  Sex: Male

DRUGS (1)
  1. FORTEO [Suspect]
     Dosage: UNK
     Route: 058
     Dates: start: 201202

REACTIONS (4)
  - Fall [Recovered/Resolved]
  - Fracture [Recovering/Resolving]
  - Inappropriate schedule of drug administration [Recovered/Resolved]
  - Medication error [Recovered/Resolved]
